FAERS Safety Report 9190931 (Version 1)
Quarter: 2013Q1

REPORT INFORMATION
  Report Type: Report from Study
  Country: CN (occurrence: CN)
  Receive Date: 20130326
  Receipt Date: 20130326
  Transmission Date: 20140127
  Serious: Yes (Hospitalization)
  Sender: FDA-Public Use
  Company Number: CN-GLAXOSMITHKLINE-Z0003744A

PATIENT
  Age: 43 Year
  Sex: Female
  Weight: 73 kg

DRUGS (2)
  1. PAZOPANIB [Suspect]
     Indication: OVARIAN CANCER
     Dosage: 800MG PER DAY
     Dates: start: 20100311
  2. RINGER^S SOLUTION [Concomitant]
     Indication: PYREXIA
     Dosage: 500MGML PER DAY
     Route: 042
     Dates: start: 20100319, end: 20100322

REACTIONS (1)
  - Pyrexia [Recovered/Resolved]
